FAERS Safety Report 5779275-2 (Version None)
Quarter: 2008Q2

REPORT INFORMATION
  Report Type: 
  Country: None (occurrence: None)
  Receive Date: 20080619
  Receipt Date: 20080616
  Transmission Date: 20081010
  Serious: Yes (Death)
  Sender: FDA-Public Use
  Company Number: US-ALLERGAN-0805994US

PATIENT
  Age: 35 Year
  Sex: Female

DRUGS (4)
  1. BOTOX COSMETIC [Suspect]
     Indication: SKIN WRINKLING
     Dosage: 40 UNITS, SINGLE
     Route: 030
     Dates: start: 20080515, end: 20080515
  2. BOTOX COSMETIC [Suspect]
     Indication: TENSION HEADACHE
  3. REMERON [Concomitant]
  4. SEROQUEL [Concomitant]

REACTIONS (1)
  - RESPIRATORY ARREST [None]
